FAERS Safety Report 4806856-2 (Version None)
Quarter: 2005Q4

REPORT INFORMATION
  Report Type: 
  Country: None (occurrence: None)
  Receive Date: 20051024
  Receipt Date: 20010307
  Transmission Date: 20060501
  Serious: Yes (Death, Hospitalization)
  Sender: FDA-Public Use
  Company Number: GB-SOLVAY-00205003342

PATIENT
  Age: 30118 Day
  Sex: Female
  Weight: 63 kg

DRUGS (2)
  1. PERINDOPRIL ERBUMINE [Suspect]
     Indication: CARDIAC FAILURE CONGESTIVE
     Dosage: DAILY DOSE: 2 MILLIGRAM(S)
     Route: 048
     Dates: start: 20000229, end: 20000312
  2. PERINDOPRIL ERBUMINE [Suspect]
     Dosage: DAILY DOSE: 4 MILLIGRAM(S)
     Route: 048
     Dates: start: 20000313, end: 20010212

REACTIONS (8)
  - CARDIAC FAILURE CONGESTIVE [None]
  - COLORECTAL CANCER [None]
  - COLORECTAL CANCER METASTATIC [None]
  - FATIGUE [None]
  - OEDEMA PERIPHERAL [None]
  - PNEUMONIA [None]
  - RECTAL HAEMORRHAGE [None]
  - URINARY TRACT INFECTION [None]
